FAERS Safety Report 7104945-3 (Version None)
Quarter: 2010Q4

REPORT INFORMATION
  Report Type: 
  Country: None (occurrence: None)
  Receive Date: 20101116
  Receipt Date: 20101103
  Transmission Date: 20110411
  Serious: Yes (Hospitalization)
  Sender: FDA-Public Use
  Company Number: PHHY2010AR74131

PATIENT
  Sex: Male

DRUGS (1)
  1. CLOZAPINE [Suspect]
     Indication: MENTAL DISORDER
     Dosage: UNK
     Dates: start: 20000101, end: 20101030

REACTIONS (3)
  - ASPIRATION BRONCHIAL [None]
  - PSYCHIATRIC DECOMPENSATION [None]
  - PYREXIA [None]
